FAERS Safety Report 25218698 (Version 2)
Quarter: 2025Q2

REPORT INFORMATION
  Report Type: Report from Study
  Country: CA (occurrence: CA)
  Receive Date: 20250421
  Receipt Date: 20250513
  Transmission Date: 20250717
  Serious: Yes (Death, Hospitalization)
  Sender: ABBVIE
  Company Number: CA-ABBVIE-6232654

PATIENT
  Age: 68 Year
  Sex: Male

DRUGS (1)
  1. RINVOQ [Suspect]
     Active Substance: UPADACITINIB
     Indication: Rheumatoid arthritis
     Route: 048

REACTIONS (4)
  - Death [Fatal]
  - Blood glucose increased [Not Recovered/Not Resolved]
  - Pneumonia [Not Recovered/Not Resolved]
  - Hypertension [Not Recovered/Not Resolved]

NARRATIVE: CASE EVENT DATE: 20250401
